FAERS Safety Report 6508184-6 (Version None)
Quarter: 2009Q4

REPORT INFORMATION
  Report Type: 
  Country: None (occurrence: None)
  Receive Date: 20091221
  Receipt Date: 20081222
  Transmission Date: 20100525
  Serious: No
  Sender: FDA-Public Use
  Company Number: US-ASTRAZENECA-2008UW28591

PATIENT
  Age: 67 Year
  Sex: Female
  Weight: 72.1 kg

DRUGS (4)
  1. CRESTOR [Suspect]
     Indication: BLOOD CHOLESTEROL INCREASED
     Dosage: 10 MG
     Route: 048
     Dates: start: 20081201
  2. ENABLEX [Concomitant]
  3. PROPOXYPHENE HCL CAP [Concomitant]
  4. VITAMINS [Concomitant]

REACTIONS (4)
  - DRY MOUTH [None]
  - DYSPEPSIA [None]
  - EPISTAXIS [None]
  - STRESS [None]
